FAERS Safety Report 7084151-1 (Version None)
Quarter: 2010Q4

REPORT INFORMATION
  Report Type: 
  Country: None (occurrence: None)
  Receive Date: 20101104
  Receipt Date: 20101021
  Transmission Date: 20110411
  Serious: Yes (Hospitalization)
  Sender: FDA-Public Use
  Company Number: DE-AMGEN-DEUCT2010000881

PATIENT

DRUGS (6)
  1. ENBREL [Suspect]
     Indication: ANKYLOSING SPONDYLITIS
     Dosage: 50 MG, QWK
     Route: 058
     Dates: start: 20050628, end: 20101001
  2. BUPRENORPHINE [Concomitant]
  3. FOSAMAX [Concomitant]
  4. CALCIUM [Concomitant]
  5. METHYLPREDNISOLONE [Concomitant]
  6. ETORICOXIB [Concomitant]
     Dosage: 60 MG, FREQUENCY UNKNOWN
     Route: 048

REACTIONS (2)
  - INGUINAL HERNIA [None]
  - POST PROCEDURAL COMPLICATION [None]
